FAERS Safety Report 21746606 (Version 1)
Quarter: 2022Q4

REPORT INFORMATION
  Report Type: Spontaneous
  Country: US (occurrence: None)
  Receive Date: 20221216
  Receipt Date: 20221216
  Transmission Date: 20230112
  Serious: No
  Sender: FDA-Public Use
  Company Number: None

PATIENT
  Age: 20 Year
  Sex: Male
  Weight: 75.89 kg

DRUGS (9)
  1. CYCLOPHOSPHAMIDE [Suspect]
     Active Substance: CYCLOPHOSPHAMIDE
     Indication: Brain neoplasm malignant
     Dosage: FREQUENCY : DAILY;?
     Route: 048
     Dates: start: 20221122
  2. ETOPOSIDE [Suspect]
     Active Substance: ETOPOSIDE
     Indication: Brain neoplasm malignant
     Dosage: OTHER QUANTITY : 50-100MG;?FREQUENCY : DAILY;?
     Route: 048
     Dates: start: 20221122
  3. CELECOXIB [Concomitant]
     Active Substance: CELECOXIB
  4. CYCLOPHOSPHAMIDE [Concomitant]
     Active Substance: CYCLOPHOSPHAMIDE
  5. DULOXETINE [Concomitant]
     Active Substance: DULOXETINE
  6. FENOBFIBRATE [Concomitant]
  7. IBUPROFEN [Concomitant]
     Active Substance: IBUPROFEN
  8. SENNA PLUS [Concomitant]
     Active Substance: DOCUSATE SODIUM\SENNOSIDES\SENNOSIDES A AND B
  9. TYLENOL [Concomitant]
     Active Substance: ACETAMINOPHEN

REACTIONS (1)
  - SARS-CoV-2 test positive [None]

NARRATIVE: CASE EVENT DATE: 20221127
